FAERS Safety Report 24924006 (Version 1)
Quarter: 2025Q1

REPORT INFORMATION
  Report Type: Spontaneous
  Country: GB (occurrence: GB)
  Receive Date: 20250204
  Receipt Date: 20250204
  Transmission Date: 20250409
  Serious: Yes (Other)
  Sender: SANDOZ
  Company Number: GB-002147023-NVSC2024GB157428

PATIENT
  Age: 82 Year
  Sex: Female

DRUGS (2)
  1. AZOPT [Suspect]
     Active Substance: BRINZOLAMIDE
     Indication: Product used for unknown indication
     Dosage: 2 DRP, QD (2 DROPS DAILY OF AZOPT)
     Route: 065
  2. XALATAN [Concomitant]
     Active Substance: LATANOPROST
     Indication: Glaucoma
     Route: 065

REACTIONS (4)
  - Madarosis [Unknown]
  - Deafness [Unknown]
  - Hypoacusis [Unknown]
  - Eyelash discolouration [Unknown]
